FAERS Safety Report 4379764-1 (Version None)
Quarter: 2004Q2

REPORT INFORMATION
  Report Type: 
  Country: None (occurrence: None)
  Receive Date: 20040617
  Receipt Date: 20040609
  Transmission Date: 20050107
  Serious: Yes (Hospitalization)
  Sender: FDA-Public Use
  Company Number: SE-BRISTOL-MYERS SQUIBB COMPANY-12612008

PATIENT
  Age: 52 Year
  Sex: Female

DRUGS (6)
  1. VEPESID [Suspect]
     Indication: GASTROINTESTINAL CANCER METASTATIC
     Route: 042
     Dates: start: 20040608, end: 20040608
  2. CALCIUM FOLINATE [Concomitant]
     Route: 042
     Dates: start: 20040608, end: 20040608
  3. FLUOROURACIL [Concomitant]
     Dates: start: 20040608, end: 20040608
  4. BETAPRED [Concomitant]
     Dosage: 8+8
     Route: 048
  5. LANSOPRAZOLE [Concomitant]
  6. CYKLOKAPRON [Concomitant]
     Dosage: 2X3

REACTIONS (2)
  - CHEST PAIN [None]
  - DYSPNOEA [None]
